FAERS Safety Report 5532852-6 (Version None)
Quarter: 2007Q4

REPORT INFORMATION
  Report Type: 
  Country: None (occurrence: None)
  Receive Date: 20071130
  Receipt Date: 20071130
  Transmission Date: 20080405
  Serious: Yes (Other)
  Sender: FDA-Public Use
  Company Number: None

PATIENT
  Age: 48 Year
  Sex: Female
  Weight: 97.977 kg

DRUGS (1)
  1. GLUCOPHAGE [Suspect]
     Indication: TYPE 2 DIABETES MELLITUS
     Dosage: 1000MG DAILY PO; DAILY
     Route: 048
     Dates: start: 20070320, end: 20071126

REACTIONS (2)
  - ALOPECIA [None]
  - TRICHORRHEXIS [None]
